FAERS Safety Report 14335661 (Version 3)
Quarter: 2018Q2

REPORT INFORMATION
  Report Type: Spontaneous
  Country: US (occurrence: US)
  Receive Date: 20171229
  Receipt Date: 20180406
  Transmission Date: 20180711
  Serious: No
  Sender: FDA-Public Use
  Company Number: US-TEVA-2017-US-832705

PATIENT
  Sex: Female
  Weight: 51 kg

DRUGS (22)
  1. BENADRYL [Concomitant]
     Active Substance: DIPHENHYDRAMINE HYDROCHLORIDE
     Route: 048
  2. MELATONIN [Concomitant]
     Active Substance: MELATONIN
  3. FUROSEMIDE. [Concomitant]
     Active Substance: FUROSEMIDE
  4. PREDNISONE. [Concomitant]
     Active Substance: PREDNISONE
  5. ONDANSETRON [Concomitant]
     Active Substance: ONDANSETRON
  6. ALLEGRA [Concomitant]
     Active Substance: FEXOFENADINE HYDROCHLORIDE
  7. AQUANIL [Concomitant]
  8. KLOR-CON [Concomitant]
     Active Substance: POTASSIUM CHLORIDE
  9. TRIAMCINOLONE [Concomitant]
     Active Substance: TRIAMCINOLONE
  10. CITRACAL + D3 [Concomitant]
  11. ARNICA [Concomitant]
     Active Substance: ARNICA MONTANA FLOWER
  12. COENZYME Q10 [Concomitant]
     Active Substance: UBIDECARENONE
  13. ZYRTEC [Concomitant]
     Active Substance: CETIRIZINE HYDROCHLORIDE
  14. TYLENOL [Concomitant]
     Active Substance: ACETAMINOPHEN
  15. METAMUCIL [Concomitant]
     Active Substance: PLANTAGO SEED
  16. XYZAL [Concomitant]
     Active Substance: LEVOCETIRIZINE DIHYDROCHLORIDE
  17. MAGNESIUM [Concomitant]
     Active Substance: MAGNESIUM
  18. ALEVICYN [Concomitant]
  19. SYNRIBO [Suspect]
     Active Substance: OMACETAXINE MEPESUCCINATE
     Indication: CHRONIC MYELOID LEUKAEMIA
     Dosage: DOSAGE STRENGTH: 1.9MG/ 0.54ML
     Route: 058
     Dates: start: 201711
  20. POTASSIUM [Concomitant]
     Active Substance: POTASSIUM
  21. VENTOLIN [Concomitant]
     Active Substance: ALBUTEROL SULFATE
  22. AMICA [Concomitant]

REACTIONS (11)
  - Nausea [Unknown]
  - Cough [Unknown]
  - Dyspnoea [Unknown]
  - Injection site erythema [Unknown]
  - Injection site swelling [Unknown]
  - Ocular hyperaemia [Unknown]
  - Fatigue [Unknown]
  - Eye swelling [Unknown]
  - Injection site pruritus [Unknown]
  - Hypersensitivity [Unknown]
  - Feeling abnormal [Unknown]
